FAERS Safety Report 4751306-8 (Version None)
Quarter: 2005Q3

REPORT INFORMATION
  Report Type: 
  Country: None (occurrence: None)
  Receive Date: 20050822
  Receipt Date: 20050808
  Transmission Date: 20060218
  Serious: Yes (Hospitalization, Other)
  Sender: FDA-Public Use
  Company Number: 2003143478US

PATIENT
  Age: 37 Year
  Sex: Female

DRUGS (4)
  1. XANAX [Suspect]
     Indication: PANIC DISORDER
     Dosage: 5 MG (2 IN 1 D), ORAL
     Route: 048
     Dates: start: 19990519
  2. NEO-SYNEPHRINE (PHENYLEPHRINE HYDROCHLORIDE) [Suspect]
     Indication: SINUS DISORDER
     Dosage: NASAL
     Route: 045
     Dates: start: 20040430
  3. KEFLEX [Suspect]
     Indication: BRONCHITIS
  4. CIPROFLOXACIN [Concomitant]

REACTIONS (50)
  - ABDOMINAL PAIN UPPER [None]
  - ANGER [None]
  - BLOOD PRESSURE INCREASED [None]
  - BRONCHITIS [None]
  - BURNING SENSATION [None]
  - CEREBRAL ATROPHY [None]
  - CEREBRAL VENTRICLE DILATATION [None]
  - CEREBROVASCULAR ACCIDENT [None]
  - CHEST PAIN [None]
  - CONDITION AGGRAVATED [None]
  - DEHYDRATION [None]
  - DIZZINESS [None]
  - DRUG DEPENDENCE [None]
  - DRUG DOSE OMISSION [None]
  - DRUG INTERACTION [None]
  - DRUG WITHDRAWAL SYNDROME [None]
  - DRY MOUTH [None]
  - DYSPNOEA [None]
  - GINGIVITIS [None]
  - HEADACHE [None]
  - HEART RATE INCREASED [None]
  - HYPOAESTHESIA [None]
  - INFLAMMATION [None]
  - MOOD SWINGS [None]
  - MUSCLE SPASMS [None]
  - NASAL CONGESTION [None]
  - NASAL DISCOMFORT [None]
  - NASAL DRYNESS [None]
  - NASAL SEPTUM DISORDER [None]
  - ORAL DISCOMFORT [None]
  - PARAESTHESIA [None]
  - PARAESTHESIA ORAL [None]
  - PHARMACEUTICAL PRODUCT COMPLAINT [None]
  - POLYP [None]
  - POST PROCEDURAL COMPLICATION [None]
  - PROTEIN TOTAL INCREASED [None]
  - RASH [None]
  - RHINITIS [None]
  - RHINORRHOEA [None]
  - SCAB [None]
  - SINUS CONGESTION [None]
  - SINUS DISORDER [None]
  - SINUSITIS [None]
  - TONGUE DISORDER [None]
  - TOOTH DISORDER [None]
  - TOOTH FRACTURE [None]
  - UNEVALUABLE EVENT [None]
  - UPPER RESPIRATORY TRACT INFECTION [None]
  - URTICARIA [None]
  - VITAMIN D DECREASED [None]
